FAERS Safety Report 4607363-2 (Version None)
Quarter: 2005Q1

REPORT INFORMATION
  Report Type: 
  Country: None (occurrence: None)
  Receive Date: 20050311
  Receipt Date: 20050311
  Transmission Date: 20050727
  Serious: No
  Sender: FDA-Public Use
  Company Number: None

PATIENT
  Age: 44 Year
  Sex: Male

DRUGS (4)
  1. ASPIRIN [Suspect]
     Dosage: 650 Q 4 H PRN [CHRONIC]
  2. IBUPROFEN [Suspect]
     Indication: BACK PAIN
     Dosage: 400 MG Q 6H [CHRONIC]
  3. DEXAMETHASONE 4MG TAB [Suspect]
     Indication: UPPER RESPIRATORY TRACT INFECTION
     Dosage: 4 MG Q 6H
     Dates: start: 20041008
  4. DEXAMETHASONE 4MG TAB [Suspect]
     Indication: UPPER RESPIRATORY TRACT INFECTION
     Dosage: 4 MG Q 6H
     Dates: start: 20041009

REACTIONS (3)
  - HAEMORRHAGE [None]
  - RECTAL HAEMORRHAGE [None]
  - UPPER RESPIRATORY TRACT INFECTION [None]
